FAERS Safety Report 11879917 (Version 2)
Quarter: 2016Q3

REPORT INFORMATION
  Report Type: Spontaneous
  Country: JP (occurrence: JP)
  Receive Date: 20151230
  Receipt Date: 20160708
  Transmission Date: 20161109
  Serious: Yes (Hospitalization)
  Sender: FDA-Public Use
  Company Number: JP-UCBSA-2015042565

PATIENT
  Age: 53 Year
  Sex: Female

DRUGS (8)
  1. LANDSEN [Concomitant]
     Active Substance: CLONAZEPAM
     Indication: MYOCLONUS
     Dosage: 6 MG DAILY DOSE
     Route: 048
  2. DEPAKENE [Concomitant]
     Active Substance: VALPROIC ACID
     Dosage: 1200 MG DAILY DOSE
     Route: 048
     Dates: start: 20151008, end: 20151011
  3. DEPAKENE [Concomitant]
     Active Substance: VALPROIC ACID
     Indication: MYOCLONUS
     Dosage: 1000 MG DAILY DOSE
     Route: 048
     Dates: end: 20151007
  4. EXCEGRAN [Concomitant]
     Active Substance: ZONISAMIDE
     Dosage: 100 MG DAILY DOSE
     Route: 048
     Dates: start: 20150925, end: 20151009
  5. MYSTAN [Suspect]
     Active Substance: CLOBAZAM
     Indication: MYOCLONUS
     Dosage: 20 MG DAILY
     Route: 048
     Dates: start: 20151009, end: 20151013
  6. E KEPPRA [Suspect]
     Active Substance: LEVETIRACETAM
     Indication: MYOCLONIC EPILEPSY
     Dosage: 1500 MG DAILY DOSE
     Route: 048
     Dates: start: 20151006, end: 20151006
  7. EXCEGRAN [Concomitant]
     Active Substance: ZONISAMIDE
     Indication: MYOCLONUS
     Dosage: 200 MG DAILY DOSE
     Route: 048
     Dates: end: 20150924
  8. E KEPPRA [Suspect]
     Active Substance: LEVETIRACETAM
     Indication: OFF LABEL USE
     Dosage: 2000 MG DAILY DOSE
     Route: 048
     Dates: start: 20151007, end: 20151009

REACTIONS (3)
  - Off label use [Unknown]
  - Rash [Recovering/Resolving]
  - Pyrexia [Recovered/Resolved]

NARRATIVE: CASE EVENT DATE: 20151006
